FAERS Safety Report 14108799 (Version 1)
Quarter: 2017Q4

REPORT INFORMATION
  Report Type: Spontaneous
  Country: SE (occurrence: SE)
  Receive Date: 20171019
  Receipt Date: 20171019
  Transmission Date: 20180321
  Serious: Yes (Disabling, Other)
  Sender: FDA-Public Use
  Company Number: SE-MYLANLABS-2017M1064886

PATIENT
  Age: 48 Year
  Sex: Male

DRUGS (3)
  1. NEXIUM [Suspect]
     Active Substance: ESOMEPRAZOLE MAGNESIUM
     Indication: GASTROINTESTINAL BACTERIAL INFECTION
     Dosage: UNK
     Dates: start: 201610
  2. AMIMOX [Suspect]
     Active Substance: AMOXICILLIN
     Indication: GASTROINTESTINAL BACTERIAL INFECTION
     Dosage: UNK
     Dates: start: 201610
  3. KLACID [Suspect]
     Active Substance: CLARITHROMYCIN
     Indication: GASTROINTESTINAL BACTERIAL INFECTION
     Dosage: UNK
     Dates: start: 201610

REACTIONS (1)
  - Diverticulitis [Not Recovered/Not Resolved]
